FAERS Safety Report 7561415-6 (Version None)
Quarter: 2011Q2

REPORT INFORMATION
  Report Type: 
  Country: None (occurrence: None)
  Receive Date: 20110621
  Receipt Date: 20100909
  Transmission Date: 20111010
  Serious: No
  Sender: FDA-Public Use
  Company Number: US-ASTRAZENECA-2010SE42485

PATIENT
  Age: 1106 Day
  Sex: Male
  Weight: 17.2 kg

DRUGS (5)
  1. PULMICORT [Suspect]
     Indication: HYPERSENSITIVITY
     Route: 055
     Dates: start: 20100201
  2. XOPENEX [Concomitant]
     Indication: COUGH
  3. PULMICORT [Suspect]
     Route: 055
  4. VERAMYST [Concomitant]
  5. PULMICORT [Suspect]
     Route: 055

REACTIONS (2)
  - THERAPEUTIC RESPONSE UNEXPECTED [None]
  - LARYNGITIS [None]
